FAERS Safety Report 11776576 (Version 1)
Quarter: 2015Q4

REPORT INFORMATION
  Report Type: Report from Study
  Country: AU (occurrence: AU)
  Receive Date: 20151125
  Receipt Date: 20151125
  Transmission Date: 20160304
  Serious: Yes (Hospitalization)
  Sender: FDA-Public Use
  Company Number: AU-ABBVIE-15K-008-1503160-00

PATIENT
  Sex: Female

DRUGS (1)
  1. HUMIRA [Suspect]
     Active Substance: ADALIMUMAB
     Indication: ANKYLOSING SPONDYLITIS
     Route: 058
     Dates: start: 20150707

REACTIONS (5)
  - Dizziness [Recovering/Resolving]
  - Influenza [Recovering/Resolving]
  - Injury [Recovering/Resolving]
  - Fatigue [Recovering/Resolving]
  - Laceration [Recovering/Resolving]

NARRATIVE: CASE EVENT DATE: 2015
